FAERS Safety Report 10866831 (Version 1)
Quarter: 2015Q1

REPORT INFORMATION
  Report Type: Spontaneous
  Country: US (occurrence: US)
  Receive Date: 20150225
  Receipt Date: 20150225
  Transmission Date: 20150721
  Serious: No
  Sender: FDA-Public Use
  Company Number: US-BIOGENIDEC-2015BI021085

PATIENT
  Sex: Female
  Weight: 58 kg

DRUGS (13)
  1. NITROFURANTIN [Concomitant]
     Active Substance: NITROFURANTOIN
  2. DITROPAN XL [Concomitant]
     Active Substance: OXYBUTYNIN CHLORIDE
  3. AMPYRA [Concomitant]
     Active Substance: DALFAMPRIDINE
  4. MESTINON [Concomitant]
     Active Substance: PYRIDOSTIGMINE BROMIDE
  5. NAPROXEN. [Concomitant]
     Active Substance: NAPROXEN
  6. TECFIDERA [Suspect]
     Active Substance: DIMETHYL FUMARATE
     Indication: MULTIPLE SCLEROSIS
     Route: 048
  7. ASPIRIN ADUL TAB [Concomitant]
  8. MACRODANTIN [Concomitant]
     Active Substance: NITROFURANTOIN
  9. EFFEXOR [Concomitant]
     Active Substance: VENLAFAXINE HYDROCHLORIDE
  10. VITAMIN D [Concomitant]
     Active Substance: CHOLECALCIFEROL
  11. BACLOFEN. [Concomitant]
     Active Substance: BACLOFEN
  12. CALCIUM +D [Concomitant]
     Active Substance: CALCIUM\VITAMIN D
  13. PEPTO BISMOL  SUS 262/15 ML [Concomitant]

REACTIONS (2)
  - Dizziness [Unknown]
  - Balance disorder [Unknown]
